FAERS Safety Report 19768965 (Version 1)
Quarter: 2021Q3

REPORT INFORMATION
  Report Type: Spontaneous
  Country: US (occurrence: US)
  Receive Date: 20210827
  Receipt Date: 20210827
  Transmission Date: 20211014
  Serious: No
  Sender: FDA-Public Use
  Company Number: None

PATIENT
  Sex: Female

DRUGS (1)
  1. COSENTYX [Suspect]
     Active Substance: SECUKINUMAB
     Indication: ANKYLOSING SPONDYLITIS
     Route: 058
     Dates: start: 202106

REACTIONS (5)
  - Loss of personal independence in daily activities [None]
  - Illness [None]
  - Fatigue [None]
  - Tremor [None]
  - Feeling abnormal [None]
